FAERS Safety Report 12846636 (Version 1)
Quarter: 2016Q4

REPORT INFORMATION
  Report Type: Report from Study
  Country: US (occurrence: US)
  Receive Date: 20161014
  Receipt Date: 20161014
  Transmission Date: 20170207
  Serious: No
  Sender: FDA-Public Use
  Company Number: PHEH2016US026275

PATIENT
  Age: 22 Year
  Sex: Female

DRUGS (1)
  1. ENTRESTO [Suspect]
     Active Substance: SACUBITRIL\VALSARTAN
     Indication: PRODUCT USED FOR UNKNOWN INDICATION
     Dosage: 50 MG, BID
     Route: 048
     Dates: start: 20161005, end: 20161009

REACTIONS (6)
  - Insomnia [Unknown]
  - Renal disorder [Unknown]
  - Urine odour abnormal [Unknown]
  - Dyspnoea [Unknown]
  - Skin discolouration [Unknown]
  - Back pain [Unknown]

NARRATIVE: CASE EVENT DATE: 20161008
